FAERS Safety Report 11922609 (Version 1)
Quarter: 2016Q1

REPORT INFORMATION
  Report Type: Report from Study
  Country: FR (occurrence: FR)
  Receive Date: 20160115
  Receipt Date: 20160115
  Transmission Date: 20160526
  Serious: Yes (Hospitalization)
  Sender: FDA-Public Use
  Company Number: FR-ACTELION-A-CH2015-127999

PATIENT
  Age: 32 Year
  Sex: Male
  Weight: 72.4 kg

DRUGS (7)
  1. ZYLORIC [Concomitant]
     Active Substance: ALLOPURINOL
     Dosage: UNK
  2. LEVOTHYROX [Concomitant]
     Active Substance: LEVOTHYROXINE
     Dosage: UNK
     Dates: start: 20150519
  3. CLAMOXYL [Concomitant]
     Active Substance: AMOXICILLIN\CLAVULANIC ACID
     Dosage: UNK
     Dates: start: 20151122
  4. MACITENTAN [Suspect]
     Active Substance: MACITENTAN
     Indication: RIGHT-TO-LEFT CARDIAC SHUNT
     Dosage: 10 MG, QD
     Route: 048
     Dates: start: 20150617, end: 20151126
  5. REVATIO [Concomitant]
     Active Substance: SILDENAFIL CITRATE
     Dosage: UNK
     Dates: start: 20110701
  6. TENORMIN [Concomitant]
     Active Substance: ATENOLOL
     Dosage: UNK
     Dates: start: 20150519
  7. DIFFU K [Concomitant]
     Active Substance: POTASSIUM CHLORIDE
     Dosage: UNK
     Dates: start: 20150519

REACTIONS (12)
  - Renal impairment [Unknown]
  - White blood cell count decreased [Recovered/Resolved]
  - Glomerular filtration rate decreased [Unknown]
  - Cardiac failure [Recovered/Resolved]
  - Generalised oedema [Recovered/Resolved]
  - Weight increased [Recovered/Resolved]
  - Blood creatinine increased [Unknown]
  - Pancytopenia [Recovered/Resolved]
  - Anaemia macrocytic [Recovered/Resolved]
  - Pericardial effusion [Recovered/Resolved]
  - Cough [Unknown]
  - Leukopenia [Recovered/Resolved]

NARRATIVE: CASE EVENT DATE: 20151125
